FAERS Safety Report 8934972 (Version 2)
Quarter: 2013Q1

REPORT INFORMATION
  Report Type: Spontaneous
  Country: IT (occurrence: IT)
  Receive Date: 20121129
  Receipt Date: 20130116
  Transmission Date: 20140127
  Serious: Yes (Death, Hospitalization)
  Sender: FDA-Public Use
  Company Number: IT-BAYER-2012-123079

PATIENT
  Age: 81 Year
  Sex: Male

DRUGS (6)
  1. CARDIOASPIRIN [Suspect]
     Indication: TRANSIENT ISCHAEMIC ATTACK
     Dosage: 100 MG, QD
     Route: 048
     Dates: start: 20120501, end: 20120918
  2. HUMULIN I [Concomitant]
     Indication: TYPE 1 DIABETES MELLITUS
     Dosage: DAILY DOSE 6 IU
     Route: 058
  3. HUMALOG MIX [Concomitant]
     Indication: TYPE 1 DIABETES MELLITUS
     Dosage: DAILY DOSE 34 IU
     Route: 058
  4. HUMULIN [Concomitant]
     Indication: TYPE 1 DIABETES MELLITUS
     Dosage: DAILY DOSE 6 IU
     Route: 058
  5. ENTACT [Concomitant]
     Dosage: 20 MG, QD
  6. PANTORC [Concomitant]
     Dosage: 20 MG, QD

REACTIONS (1)
  - Cerebral haemorrhage [Fatal]
